FAERS Safety Report 19390390 (Version 1)
Quarter: 2021Q2

REPORT INFORMATION
  Report Type: Spontaneous
  Country: US (occurrence: US)
  Receive Date: 20210608
  Receipt Date: 20210608
  Transmission Date: 20210717
  Serious: No
  Sender: FDA-Public Use
  Company Number: US-SOMERSET-2021-US-000223

PATIENT
  Age: 76 Year
  Sex: Female

DRUGS (2)
  1. LIDOCAINE FOR INJECTION [Suspect]
     Active Substance: LIDOCAINE
     Dosage: 1 INJECTION
     Dates: start: 20201014, end: 20201014
  2. DEXAMETHASONE SODIUM PHOSPHATE INJECTION USP [Suspect]
     Active Substance: DEXAMETHASONE SODIUM PHOSPHATE
     Dosage: 1 INJECTION
     Dates: start: 20201014, end: 20201014

REACTIONS (4)
  - Flushing [Recovered/Resolved]
  - Body temperature increased [Recovered/Resolved]
  - Drug ineffective [Recovered/Resolved]
  - Hyperhidrosis [Recovered/Resolved]

NARRATIVE: CASE EVENT DATE: 20201015
